FAERS Safety Report 4285579-5 (Version None)
Quarter: 2004Q1

REPORT INFORMATION
  Report Type: 
  Country: None (occurrence: None)
  Receive Date: 20040203
  Receipt Date: 20040120
  Transmission Date: 20041129
  Serious: Yes (Other)
  Sender: FDA-Public Use
  Company Number: 200410050EU

PATIENT
  Age: 66 Year
  Sex: Male

DRUGS (5)
  1. RIFAMPICIN [Suspect]
     Indication: TUBERCULOSIS
     Dosage: 45 MG/DAY
     Dates: start: 20000810, end: 20000817
  2. RIFAMPICIN [Suspect]
     Indication: TUBERCULOSIS
     Dosage: 5 MG/DAY
     Dates: start: 20001012, end: 20001121
  3. IZONIAZID [Concomitant]
  4. ETHABUTOL [Concomitant]
  5. PREDNISOLONE [Concomitant]

REACTIONS (9)
  - AGRANULOCYTOSIS [None]
  - DRUG HYPERSENSITIVITY [None]
  - HAEMOGLOBIN DECREASED [None]
  - LYMPHOCYTE PERCENTAGE DECREASED [None]
  - MONOCYTE PERCENTAGE DECREASED [None]
  - PLATELET COUNT DECREASED [None]
  - RASH [None]
  - RED BLOOD CELL COUNT DECREASED [None]
  - WHITE BLOOD CELL COUNT DECREASED [None]
